FAERS Safety Report 16039185 (Version 1)
Quarter: 2019Q1

REPORT INFORMATION
  Report Type: Report from Study
  Country: US (occurrence: US)
  Receive Date: 20190306
  Receipt Date: 20190306
  Transmission Date: 20190418
  Serious: Yes (Other)
  Sender: FDA-Public Use
  Company Number: US-TAKEDA-2018TUS034565

PATIENT
  Age: 59 Year
  Sex: Female

DRUGS (4)
  1. BUDESONIDE. [Concomitant]
     Active Substance: BUDESONIDE
     Indication: CROHN^S DISEASE
     Dosage: UNK UNK, QD
     Route: 048
  2. CELECOXIB. [Concomitant]
     Active Substance: CELECOXIB
     Indication: SYSTEMIC LUPUS ERYTHEMATOSUS
     Dosage: UNK UNK, QD
     Route: 048
  3. CELECOXIB. [Concomitant]
     Active Substance: CELECOXIB
     Indication: AUTOIMMUNE DISORDER
  4. VEDOLIZUMAB [Suspect]
     Active Substance: VEDOLIZUMAB
     Indication: CROHN^S DISEASE
     Dosage: 300 MG, UNK
     Route: 042
     Dates: start: 201810, end: 2018

REACTIONS (22)
  - Cataract [Unknown]
  - Dehydration [Unknown]
  - Urinary tract infection [Unknown]
  - Intestinal obstruction [Unknown]
  - Crohn^s disease [Not Recovered/Not Resolved]
  - Vision blurred [Unknown]
  - Vein disorder [Unknown]
  - Product dose omission [Unknown]
  - Infection [Unknown]
  - Abdominal distension [Unknown]
  - Pollakiuria [Unknown]
  - Inflammation [Unknown]
  - Constipation [Unknown]
  - Asthenia [Unknown]
  - Irritable bowel syndrome [Unknown]
  - Pain [Unknown]
  - Ocular hyperaemia [Unknown]
  - Nail disorder [Unknown]
  - Mucous stools [Unknown]
  - Sinus congestion [Not Recovered/Not Resolved]
  - Feeling abnormal [Unknown]
  - Blood iron decreased [Unknown]

NARRATIVE: CASE EVENT DATE: 201902
